FAERS Safety Report 6501082-3 (Version None)
Quarter: 2009Q4

REPORT INFORMATION
  Report Type: 
  Country: None (occurrence: None)
  Receive Date: 20091216
  Receipt Date: 20090707
  Transmission Date: 20100525
  Serious: No
  Sender: FDA-Public Use
  Company Number: A0795659A

PATIENT
  Age: 56 Year
  Sex: Male

DRUGS (2)
  1. COMMIT [Suspect]
  2. ANTI-ANXIETY MED- NAME UNKNOWN [Concomitant]

REACTIONS (3)
  - DRUG ADMINISTRATION ERROR [None]
  - INTENTIONAL DRUG MISUSE [None]
  - NICOTINE DEPENDENCE [None]
